FAERS Safety Report 19674749 (Version 2)
Quarter: 2021Q4

REPORT INFORMATION
  Report Type: Spontaneous
  Country: US (occurrence: US)
  Receive Date: 20210809
  Receipt Date: 20211102
  Transmission Date: 20220303
  Serious: Yes (Other)
  Sender: FDA-Public Use
  Company Number: US-BAYER-2021-184446

PATIENT
  Sex: Female
  Weight: 99.33 kg

DRUGS (1)
  1. MIRENA [Suspect]
     Active Substance: LEVONORGESTREL
     Indication: Contraception
     Dosage: 20?G/DAY
     Route: 015
     Dates: start: 20181109, end: 20210810

REACTIONS (5)
  - Pregnancy with contraceptive device [None]
  - Device dislocation [None]
  - Abortion spontaneous [None]
  - Haemorrhage in pregnancy [None]
  - Device physical property issue [None]
